FAERS Safety Report 4901229-6 (Version None)
Quarter: 2006Q1

REPORT INFORMATION
  Report Type: 
  Country: None (occurrence: None)
  Receive Date: 20060202
  Receipt Date: 20060120
  Transmission Date: 20060701
  Serious: Yes (Other)
  Sender: FDA-Public Use
  Company Number: 2006010991

PATIENT
  Sex: Male
  Weight: 86.1834 kg

DRUGS (9)
  1. ROGAINE [Suspect]
     Indication: ALOPECIA
     Dosage: 1 ML, TWICE DAILY, TOPICAL
     Route: 061
     Dates: start: 19880101, end: 20051001
  2. ATORVASTATIN CALCIUM [Concomitant]
  3. TAMSULOSIN HYDROCHLORIDE (TAMSULOSIN HYDROCHLORIDE) [Concomitant]
  4. SERENOA REPENS (SERENOA REPENS) [Concomitant]
  5. FINASTERIDE [Concomitant]
  6. AMLODIPINE BESYLATE [Concomitant]
  7. ESOMEPRAZOLE (ESOMEPRAZOLE) [Concomitant]
  8. IRBESARTAN [Concomitant]
  9. MULTIVITAMINS (ASCORBIC ACID, ERGOCALCIFEROL, FOLIC ACID, NICOTINAMIDE [Concomitant]

REACTIONS (1)
  - NEOPLASM MALIGNANT [None]
